FAERS Safety Report 11997916 (Version 1)
Quarter: 2016Q1

REPORT INFORMATION
  Report Type: Report from Study
  Country: US (occurrence: US)
  Receive Date: 20160203
  Receipt Date: 20160203
  Transmission Date: 20160526
  Serious: Yes (Hospitalization, Other)
  Sender: FDA-Public Use
  Company Number: US-ABBVIE-15K-163-1416708-00

PATIENT
  Sex: Female

DRUGS (14)
  1. LOPERAMIDE [Concomitant]
     Active Substance: LOPERAMIDE
     Indication: PRODUCT USED FOR UNKNOWN INDICATION
  2. CODEINE [Concomitant]
     Active Substance: CODEINE
     Indication: PRODUCT USED FOR UNKNOWN INDICATION
  3. LOMOTIL [Concomitant]
     Active Substance: ATROPINE SULFATE\DIPHENOXYLATE HYDROCHLORIDE
     Indication: PRODUCT USED FOR UNKNOWN INDICATION
  4. MS CONTIN [Concomitant]
     Active Substance: MORPHINE SULFATE
     Indication: PRODUCT USED FOR UNKNOWN INDICATION
  5. PERCOCET [Concomitant]
     Active Substance: ACETAMINOPHEN\OXYCODONE HYDROCHLORIDE
     Indication: PRODUCT USED FOR UNKNOWN INDICATION
  6. ALBUTEROL. [Concomitant]
     Active Substance: ALBUTEROL
     Indication: PRODUCT USED FOR UNKNOWN INDICATION
  7. HYOSCYAMINE. [Concomitant]
     Active Substance: HYOSCYAMINE
     Indication: PRODUCT USED FOR UNKNOWN INDICATION
  8. IMODIUM [Concomitant]
     Active Substance: LOPERAMIDE HYDROCHLORIDE
     Indication: PRODUCT USED FOR UNKNOWN INDICATION
  9. HUMIRA [Suspect]
     Active Substance: ADALIMUMAB
     Indication: CROHN^S DISEASE
     Dosage: DAY ONE
     Route: 065
  10. HUMIRA [Suspect]
     Active Substance: ADALIMUMAB
     Dosage: DAY FIFTEEN
     Route: 065
  11. SYMBICORT [Concomitant]
     Active Substance: BUDESONIDE\FORMOTEROL FUMARATE DIHYDRATE
     Indication: PRODUCT USED FOR UNKNOWN INDICATION
  12. IRON [Concomitant]
     Active Substance: IRON
     Indication: PRODUCT USED FOR UNKNOWN INDICATION
  13. HUMIRA [Suspect]
     Active Substance: ADALIMUMAB
     Route: 065
     Dates: end: 201504
  14. DEXAMETHASONE. [Concomitant]
     Active Substance: DEXAMETHASONE
     Indication: PRODUCT USED FOR UNKNOWN INDICATION

REACTIONS (8)
  - Pneumonia [Unknown]
  - Weight decreased [Not Recovered/Not Resolved]
  - Small intestinal resection [Recovered/Resolved]
  - Knee arthroplasty [Unknown]
  - Hip arthroplasty [Unknown]
  - Diarrhoea [Not Recovered/Not Resolved]
  - Lung neoplasm malignant [Unknown]
  - Asthenia [Unknown]

NARRATIVE: CASE EVENT DATE: 2008
